FAERS Safety Report 10963510 (Version 1)
Quarter: 2015Q1

REPORT INFORMATION
  Report Type: Spontaneous
  Country: US (occurrence: None)
  Receive Date: 20150226
  Receipt Date: 20150226
  Transmission Date: 20150721
  Serious: No
  Sender: FDA-Public Use
  Company Number: TPA2009A02563

PATIENT
  Age: 57 Year
  Sex: Male

DRUGS (4)
  1. UNKNOWN ACE - INHIBITOR (ACE INHIBITOR NOS) [Concomitant]
  2. ULORIC [Suspect]
     Active Substance: FEBUXOSTAT
     Indication: GOUTY TOPHUS
     Dosage: 1 IN 1 D
     Route: 048
     Dates: start: 20090726, end: 20090810
  3. SPIRONOLOACTON (SPIRONOLACTONE) [Concomitant]
  4. METFORMIN [Concomitant]
     Active Substance: METFORMIN HYDROCHLORIDE

REACTIONS (2)
  - Blood urea increased [None]
  - Blood creatinine increased [None]

NARRATIVE: CASE EVENT DATE: 20090806
